FAERS Safety Report 6533634-9 (Version None)
Quarter: 2010Q1

REPORT INFORMATION
  Report Type: 
  Country: None (occurrence: None)
  Receive Date: 20100111
  Receipt Date: 20091228
  Transmission Date: 20100710
  Serious: Yes (Hospitalization, Other)
  Sender: FDA-Public Use
  Company Number: JP-CELGENEUS-087-50794-09080043

PATIENT
  Sex: Male

DRUGS (9)
  1. VIDAZA [Suspect]
     Indication: MYELODYSPLASTIC SYNDROME
     Route: 058
     Dates: start: 20090716, end: 20090722
  2. VIDAZA [Suspect]
     Route: 058
     Dates: start: 20090409
  3. VIDAZA [Suspect]
     Route: 058
     Dates: start: 20091105, end: 20091111
  4. SELBEX (TEPRENONE) [Concomitant]
     Indication: GASTRITIS PROPHYLAXIS
     Route: 048
  5. ALLOPURINOL [Concomitant]
     Indication: GOUT
     Route: 048
  6. ZOLPIDEM TARTRATE [Concomitant]
     Indication: INFECTION PROPHYLAXIS
     Route: 048
  7. MAGNESIUM OXIDE [Concomitant]
     Indication: CONSTIPATION
     Route: 048
  8. CLOTRIMAZOLE [Concomitant]
     Route: 061
  9. HACHIAZULE [Concomitant]
     Dates: start: 20090807

REACTIONS (3)
  - FEBRILE NEUTROPENIA [None]
  - INTERSTITIAL LUNG DISEASE [None]
  - SEPSIS [None]
